FAERS Safety Report 18900927 (Version 1)
Quarter: 2021Q1

REPORT INFORMATION
  Report Type: Spontaneous
  Country: US (occurrence: US)
  Receive Date: 20210216
  Receipt Date: 20210216
  Transmission Date: 20210420
  Serious: Yes (Hospitalization)
  Sender: FDA-Public Use
  Company Number: US-IPSEN BIOPHARMACEUTICALS, INC.-2021-03585

PATIENT
  Age: 70 Year
  Sex: Male
  Weight: 112.9 kg

DRUGS (4)
  1. SOMATULINE DEPOT [Suspect]
     Active Substance: LANREOTIDE ACETATE
     Indication: ACROMEGALY
     Dosage: UNKNOWN
     Route: 065
  2. MYCAPSSA [Suspect]
     Active Substance: OCTREOTIDE
     Indication: ACROMEGALY
     Dosage: 40 MG PER DAY
     Route: 048
     Dates: start: 20190301, end: 20201213
  3. MYCAPSSA [Suspect]
     Active Substance: OCTREOTIDE
     Dosage: BID
     Route: 048
     Dates: start: 20210124
  4. VITAMIN B12 [Concomitant]
     Active Substance: CYANOCOBALAMIN
     Indication: VITAMIN SUPPLEMENTATION

REACTIONS (8)
  - Sleep apnoea syndrome [Not Recovered/Not Resolved]
  - Pancreatic disorder [Not Recovered/Not Resolved]
  - Obesity [Not Recovered/Not Resolved]
  - Anaemia [Not Recovered/Not Resolved]
  - Cholecystitis infective [Unknown]
  - Cholecystitis acute [Unknown]
  - Cholelithiasis [Unknown]
  - Chest pain [Unknown]

NARRATIVE: CASE EVENT DATE: 202012
